FAERS Safety Report 21602759 (Version 1)
Quarter: 2022Q4

REPORT INFORMATION
  Report Type: Report from Study
  Country: US (occurrence: US)
  Receive Date: 20221116
  Receipt Date: 20221116
  Transmission Date: 20230113
  Serious: Yes (Hospitalization)
  Sender: FDA-Public Use
  Company Number: US-PFIZER INC-PV202200053434

PATIENT
  Age: 77 Year
  Sex: Male

DRUGS (11)
  1. INVESTIGATIONAL PRODUCT [Suspect]
     Active Substance: INVESTIGATIONAL PRODUCT
     Dosage: 2.0 MG/KG (CYCLE DAY: C3D1)
     Dates: start: 20220630, end: 20220811
  2. DOXORUBICIN HYDROCHLORIDE [Suspect]
     Active Substance: DOXORUBICIN HYDROCHLORIDE
     Dosage: 75 MG/M2 (CYCLE DAY: C3D1)
     Dates: start: 20220630, end: 20220811
  3. ROSUVASTATIN [Concomitant]
     Active Substance: ROSUVASTATIN
     Indication: Hyperlipidaemia
     Dosage: 1 DF, 1X/DAY
     Route: 048
     Dates: start: 20150101
  4. AMLODIPINE AND OLMESARTAN MEDOXOMIL [Concomitant]
     Active Substance: AMLODIPINE BESYLATE\OLMESARTAN MEDOXOMIL
     Indication: Hypertension
     Dosage: 1 DF, 1X/DAY
     Route: 048
     Dates: start: 20150101
  5. VITAMIN D3 [Concomitant]
     Active Substance: CHOLECALCIFEROL
     Indication: Supplementation therapy
     Dosage: 1 DF, 1X/DAY
     Route: 048
     Dates: start: 20220201
  6. OXYCODONE [Concomitant]
     Active Substance: OXYCODONE
     Indication: Pain
     Dosage: 1 DF, EVERY 6 HOURS X 30 DAYS, AS NEEDED
     Route: 048
     Dates: start: 20220707, end: 20220805
  7. SENNOSIDES A AND B [Concomitant]
     Active Substance: SENNOSIDES A AND B
     Indication: Constipation
     Dosage: 2 DF, ONCE A DAY AT BEDTIME X 30 DAYS
     Route: 048
     Dates: start: 20220707, end: 20220805
  8. COLACE [Concomitant]
     Active Substance: DOCUSATE SODIUM
     Indication: Constipation
     Dosage: 1 DF, 3 DAYS A DAY X 30 DAYS
     Route: 048
     Dates: start: 20220707, end: 20220805
  9. OXYCONTIN [Concomitant]
     Active Substance: OXYCODONE HYDROCHLORIDE
     Indication: Pain
     Dosage: EXTENDED RELEASE, 1 DF, EVERY 12 HOURS X 30 DAYS
     Route: 048
     Dates: start: 20220727, end: 20220825
  10. APIXABAN [Concomitant]
     Active Substance: APIXABAN
     Dosage: 2 DF, 2 TIMES A DAY X 7 DAYS AND THEN 1 TABLET TWO TIMES PER DAY FOR 21 DAYS
     Route: 048
     Dates: start: 20220808, end: 20220906
  11. ALLOPURINOL [Concomitant]
     Active Substance: ALLOPURINOL
     Dosage: 1 DF, ONCE A DAY X 14 DAYS
     Route: 048
     Dates: start: 20220728, end: 20220810

REACTIONS (3)
  - Anaemia [Recovered/Resolved]
  - Sepsis [Recovered/Resolved]
  - Pyrexia [Recovered/Resolved]

NARRATIVE: CASE EVENT DATE: 20220819
